FAERS Safety Report 19495396 (Version 1)
Quarter: 2021Q3

REPORT INFORMATION
  Report Type: Other
  Country: DE (occurrence: DE)
  Receive Date: 20210706
  Receipt Date: 20210706
  Transmission Date: 20211014
  Serious: Yes (Death, Other)
  Sender: FDA-Public Use
  Company Number: DE-CELLTRION INC.-2021DE008958

PATIENT

DRUGS (1)
  1. RITUXIMAB (UNKNOWN) [Suspect]
     Active Substance: RITUXIMAB
     Indication: MANTLE CELL LYMPHOMA STAGE I
     Dosage: UNK
     Route: 065
     Dates: start: 20210129

REACTIONS (4)
  - Urosepsis [Fatal]
  - Hepatorenal syndrome [Not Recovered/Not Resolved]
  - Off label use [Unknown]
  - Hepatitis B [Not Recovered/Not Resolved]

NARRATIVE: CASE EVENT DATE: 202011
